FAERS Safety Report 6912566-8 (Version None)
Quarter: 2010Q3

REPORT INFORMATION
  Report Type: 
  Country: None (occurrence: None)
  Receive Date: 20100806
  Receipt Date: 20080724
  Transmission Date: 20110219
  Serious: No
  Sender: FDA-Public Use
  Company Number: US-PFIZER INC-2008094944

PATIENT
  Sex: Female
  Weight: 86.18 kg

DRUGS (5)
  1. DETROL LA [Suspect]
     Indication: URGE INCONTINENCE
     Route: 048
     Dates: start: 20060720
  2. BYETTA [Suspect]
     Indication: TYPE 2 DIABETES MELLITUS
     Route: 058
     Dates: start: 20060711
  3. METFORMIN HCL [Concomitant]
  4. LANTUS [Concomitant]
     Dates: start: 20060101
  5. AMARYL [Concomitant]

REACTIONS (2)
  - DRY MOUTH [None]
  - NAUSEA [None]
